FAERS Safety Report 5293520-1 (Version None)
Quarter: 2007Q2

REPORT INFORMATION
  Report Type: 
  Country: None (occurrence: None)
  Receive Date: 20070411
  Receipt Date: 20070405
  Transmission Date: 20071010
  Serious: Yes (Life-Threatening)
  Sender: FDA-Public Use
  Company Number: B07000022

PATIENT
  Age: 70 Year
  Sex: Male
  Weight: 80 kg

DRUGS (9)
  1. AMOXICILLIN AND CLAVULANATE POTASSIUM [Suspect]
     Indication: BRONCHITIS
     Dosage: 1UNIT SINGLE DOSE
     Route: 048
     Dates: start: 20070105, end: 20070105
  2. CELESTENE [Concomitant]
  3. AIROMIR [Concomitant]
  4. DERINOX [Concomitant]
  5. TOPLEXIL [Concomitant]
  6. AMLOR [Concomitant]
  7. RILMENIDINE [Concomitant]
  8. FUROSEMIDE [Concomitant]
  9. ISKEDYL [Concomitant]

REACTIONS (4)
  - ANAPHYLACTIC SHOCK [None]
  - ANGINA PECTORIS [None]
  - ERYTHEMA [None]
  - HYPOTENSION [None]
